FAERS Safety Report 11097033 (Version 2)
Quarter: 2015Q2

REPORT INFORMATION
  Report Type: Spontaneous
  Country: US (occurrence: US)
  Receive Date: 20150507
  Receipt Date: 20150625
  Transmission Date: 20150821
  Serious: No
  Sender: FDA-Public Use
  Company Number: US-009507513-1504USA017574

PATIENT
  Age: 75 Year
  Sex: Female
  Weight: 63.49 kg

DRUGS (8)
  1. TOPAMAX [Concomitant]
     Active Substance: TOPIRAMATE
     Dosage: UNK
  2. DULERA [Suspect]
     Active Substance: FORMOTEROL FUMARATE DIHYDRATE\MOMETASONE FUROATE
     Indication: ASTHMA
     Dosage: TWO PUFFS TWICE DAILY
     Route: 055
     Dates: start: 201210
  3. FLIXONASE [Concomitant]
     Active Substance: FLUTICASONE PROPIONATE
     Indication: HYPERSENSITIVITY
     Dosage: TOTAL DAILY DOSE:50 MICROGRAM
     Route: 045
  4. XOPENEX [Concomitant]
     Active Substance: LEVALBUTEROL HYDROCHLORIDE
     Dosage: UNK
  5. AZELASTINE HYDROCHLORIDE. [Concomitant]
     Active Substance: AZELASTINE HYDROCHLORIDE
     Indication: HYPERSENSITIVITY
     Dosage: TOTAL DAILY DOSE:137 MICROGRAM
     Route: 045
  6. QVAR [Concomitant]
     Active Substance: BECLOMETHASONE DIPROPIONATE
     Indication: ASTHMA
     Dosage: TOTAL DAILY DOSE:40 MICROGRAM ONCE DAILY
     Route: 055
  7. OLMESARTAN MEDOXOMIL. [Concomitant]
     Active Substance: OLMESARTAN MEDOXOMIL
     Indication: BLOOD PRESSURE
     Dosage: UNK
     Route: 048
  8. CLONAZEPAM. [Concomitant]
     Active Substance: CLONAZEPAM
     Indication: ANXIETY
     Dosage: UNK
     Route: 048

REACTIONS (4)
  - Asthma [Recovered/Resolved]
  - Product quality issue [Unknown]
  - Poor quality drug administered [Unknown]
  - Candida infection [Recovered/Resolved]

NARRATIVE: CASE EVENT DATE: 201503
